FAERS Safety Report 17373648 (Version 6)
Quarter: 2025Q1

REPORT INFORMATION
  Report Type: Report from Study
  Country: US (occurrence: US)
  Receive Date: 20200206
  Receipt Date: 20250212
  Transmission Date: 20250409
  Serious: Yes (Hospitalization, Other)
  Sender: TAKEDA
  Company Number: US-SHIRE-US202004190

PATIENT
  Sex: Female

DRUGS (8)
  1. PARATHYROID HORMONE [Suspect]
     Active Substance: PARATHYROID HORMONE
     Indication: Hypoparathyroidism
     Dosage: 50 MICROGRAM, QD
     Dates: start: 2009
  2. PARATHYROID HORMONE [Suspect]
     Active Substance: PARATHYROID HORMONE
     Indication: Post procedural hypoparathyroidism
  3. PARATHYROID HORMONE [Suspect]
     Active Substance: PARATHYROID HORMONE
  4. CALCIUM CARBONATE [Suspect]
     Active Substance: CALCIUM CARBONATE
     Indication: Product used for unknown indication
  5. CALCIFEDIOL ANHYDROUS [Suspect]
     Active Substance: CALCIFEDIOL ANHYDROUS
     Indication: Product used for unknown indication
  6. VITAMIN D [Concomitant]
     Active Substance: VITAMIN D NOS
     Indication: Product used for unknown indication
  7. CALCIUM [Concomitant]
     Active Substance: CALCIUM
     Indication: Product used for unknown indication
  8. LEVOTHYROXINE [Concomitant]
     Active Substance: LEVOTHYROXINE
     Indication: Product used for unknown indication

REACTIONS (4)
  - Hypercalcaemia [Unknown]
  - Hypocalcaemia [Unknown]
  - Wrong technique in device usage process [Unknown]
  - Recalled product [Unknown]
